FAERS Safety Report 8970271 (Version 1)
Quarter: 2012Q4

REPORT INFORMATION
  Report Type: 
  Country: US (occurrence: US)
  Receive Date: 20121217
  Receipt Date: 20121217
  Transmission Date: 20130627
  Serious: No
  Sender: FDA-Public Use
  Company Number: US-009507513-1212USA004079

PATIENT
  Sex: Female

DRUGS (19)
  1. FOSAMAX [Suspect]
  2. ACTONEL [Suspect]
  3. MIOCAMYCIN [Suspect]
  4. ACCURETIC [Concomitant]
     Dosage: 1 DF, qd
     Route: 048
  5. ELAVIL (AMITRIPTYLINE HYDROCHLORIDE) [Concomitant]
     Dosage: 1 DF, hs
     Route: 048
  6. BISACODYL [Concomitant]
     Dosage: 5 mg, qd
     Route: 048
  7. CALCIUM CARBONATE [Concomitant]
     Dosage: 250 mg, qd
     Route: 048
  8. CHOLECALCIFEROL [Concomitant]
     Dosage: 1 DF, qd
     Route: 048
  9. CRESTOR [Concomitant]
     Dosage: 1 DF, qpm
     Route: 048
  10. CYANOCOBALAMIN [Concomitant]
     Dosage: take 1 shot daily for 4 days, then 1 shot weekly for 4 weeks, then 1 shot monthly
  11. VASOTEC [Concomitant]
     Dosage: 1 DF, qd
     Route: 048
  12. HYDRODIURIL [Concomitant]
     Dosage: 0.5 DF, qd
     Route: 048
  13. MOTRIN [Concomitant]
     Indication: PAIN
     Dosage: 1 DF every 12 hours, prn
  14. MAGNESIUM (UNSPECIFIED) [Concomitant]
     Dosage: 1 DF, qd
     Route: 048
  15. MAGNESIUM CITRATE [Concomitant]
     Indication: CONSTIPATION
     Dosage: 296 ml, Once
     Route: 048
  16. MAGNESIA [MILK OF] [Concomitant]
     Indication: CONSTIPATION
     Dosage: 30 ml daily, prn
     Route: 048
  17. REGLAN [Concomitant]
     Dosage: 1 DF, bid
     Route: 048
  18. JUNEL FE [Concomitant]
     Dosage: 1 DF, qd
     Route: 048
  19. TOPAMAX [Concomitant]
     Dosage: 1 DF, bid

REACTIONS (1)
  - Urticaria [Unknown]
